FAERS Safety Report 17546204 (Version 1)
Quarter: 2020Q1

REPORT INFORMATION
  Report Type: Spontaneous
  Country: CA (occurrence: CA)
  Receive Date: 20200316
  Receipt Date: 20200316
  Transmission Date: 20200409
  Serious: Yes (Hospitalization)
  Sender: FDA-Public Use
  Company Number: CA-PFIZER INC-2020112178

PATIENT
  Age: 65 Year
  Sex: Female
  Weight: 68 kg

DRUGS (10)
  1. HYDROCHLOROTHIAZIDE. [Concomitant]
     Active Substance: HYDROCHLOROTHIAZIDE
  2. METHOTREXATE. [Concomitant]
     Active Substance: METHOTREXATE
  3. XELJANZ [Suspect]
     Active Substance: TOFACITINIB CITRATE
     Indication: SERONEGATIVE ARTHRITIS
     Dosage: 5 MG, 2X/DAY
     Route: 048
  4. VENLAFAXINE XR [Concomitant]
     Active Substance: VENLAFAXINE HYDROCHLORIDE
  5. ACETAMINOPHEN AND CODEINE [Concomitant]
     Active Substance: ACETAMINOPHEN\CODEINE PHOSPHATE
  6. ALENDRONATE [Concomitant]
     Active Substance: ALENDRONATE SODIUM
  7. CYCLOBENZAPRINE. [Concomitant]
     Active Substance: CYCLOBENZAPRINE
  8. FOLIC ACID. [Concomitant]
     Active Substance: FOLIC ACID
  9. HYDROXYCHLOROQUINE [Concomitant]
     Active Substance: HYDROXYCHLOROQUINE
  10. FLURBIPROFEN. [Concomitant]
     Active Substance: FLURBIPROFEN

REACTIONS (3)
  - Acute kidney injury [Unknown]
  - Pain in extremity [Unknown]
  - Thrombosis [Unknown]
